FAERS Safety Report 6024149-5 (Version None)
Quarter: 2008Q4

REPORT INFORMATION
  Report Type: 
  Country: None (occurrence: None)
  Receive Date: 20081224
  Receipt Date: 20081211
  Transmission Date: 20090506
  Serious: Yes (Hospitalization)
  Sender: FDA-Public Use
  Company Number: KV200801367

PATIENT
  Age: 56 Year
  Sex: Male

DRUGS (2)
  1. MORPHINE SULFATE [Suspect]
     Indication: BACK INJURY
     Dosage: 15 MG,TID, ORAL
     Route: 048
     Dates: start: 20080901
  2. VITAMINS NOS (VITAMINS NOS) [Concomitant]

REACTIONS (2)
  - OVERDOSE [None]
  - PRODUCT QUALITY ISSUE [None]
